FAERS Safety Report 5010587-6 (Version None)
Quarter: 2006Q2

REPORT INFORMATION
  Report Type: 
  Country: None (occurrence: None)
  Receive Date: 20060525
  Receipt Date: 20060518
  Transmission Date: 20061013
  Serious: Yes (Hospitalization)
  Sender: FDA-Public Use
  Company Number: US-JNJFOC-20060504321

PATIENT
  Sex: Female
  Weight: 65.77 kg

DRUGS (10)
  1. REMICADE [Suspect]
     Indication: RHEUMATOID ARTHRITIS
     Route: 042
  2. METHOTREXATE [Concomitant]
  3. FOLIC ACID [Concomitant]
  4. ATENOLOL [Concomitant]
  5. CYCLOBENZAPRINE HCL [Concomitant]
  6. LEVOTHYROXINE SODIUM [Concomitant]
  7. BUMETANIDE [Concomitant]
  8. ACETAMINOPHEN AND CODEINE PHOSPHATE #3 [Concomitant]
     Dosage: 10-12 TABLETS DAILY
  9. HYDROCORTISONE [Concomitant]
  10. ALBUTEROL SULFATE AUTOHALER [Concomitant]

REACTIONS (1)
  - CORONARY ARTERY DISEASE [None]
